FAERS Safety Report 8923773 (Version 1)
Quarter: 2012Q4

REPORT INFORMATION
  Report Type: 
  Country: US (occurrence: US)
  Receive Date: 20121126
  Receipt Date: 20121126
  Transmission Date: 20130627
  Serious: Yes (Hospitalization, Other)
  Sender: FDA-Public Use
  Company Number: US-BAYER-2012-121861

PATIENT
  Age: 32 Year
  Sex: Female
  Weight: 77.55 kg

DRUGS (8)
  1. YASMIN [Suspect]
  2. LEXAPRO [Concomitant]
     Dosage: 20 mg, UNK
  3. ULTRAM [Concomitant]
     Dosage: 50 mg, UNK
  4. LEVAQUIN [Concomitant]
  5. MEPERGAN [Concomitant]
     Indication: PAIN
  6. ATIVAN [Concomitant]
  7. LORTAB [Concomitant]
  8. TORADOL [Concomitant]

REACTIONS (2)
  - Pulmonary embolism [Recovered/Resolved]
  - Biliary dyskinesia [None]
